FAERS Safety Report 6477493-1 (Version None)
Quarter: 2009Q4

REPORT INFORMATION
  Report Type: 
  Country: None (occurrence: None)
  Receive Date: 20091207
  Receipt Date: 20091105
  Transmission Date: 20100525
  Serious: Yes (Life-Threatening, Hospitalization)
  Sender: FDA-Public Use
  Company Number: US-SANOFI-AVENTIS-A03200904626

PATIENT
  Age: 44 Year
  Sex: Female

DRUGS (19)
  1. DRONEDARONE [Suspect]
     Dosage: UNIT DOSE: 400 MG
     Route: 048
     Dates: start: 20090923, end: 20090928
  2. DRONEDARONE [Suspect]
     Route: 048
     Dates: start: 20091023
  3. CARVEDILOL [Concomitant]
     Indication: DRUG USE FOR UNKNOWN INDICATION
  4. ZOCOR [Concomitant]
     Indication: DRUG USE FOR UNKNOWN INDICATION
     Route: 065
  5. ORTHO TRI-CYCLEN [Concomitant]
     Route: 065
  6. ZYRTEC [Concomitant]
     Route: 065
  7. ASPIRIN [Concomitant]
     Route: 065
  8. PLAVIX [Concomitant]
     Route: 065
  9. MULTI-VITAMINS [Concomitant]
     Route: 065
  10. NEBIVOLOL [Concomitant]
  11. CALCIUM [Concomitant]
  12. PERIDEX [Concomitant]
  13. FENTANYL [Concomitant]
  14. ATIVAN [Concomitant]
  15. HYDROCORTISONE [Concomitant]
  16. MEROPENEM [Concomitant]
  17. VANCOMYCIN [Concomitant]
  18. PROTONIX [Concomitant]
  19. LEVOTHYROXINE SODIUM [Concomitant]

REACTIONS (1)
  - MULTI-ORGAN FAILURE [None]
